FAERS Safety Report 25236124 (Version 2)
Quarter: 2025Q2

REPORT INFORMATION
  Report Type: Spontaneous
  Country: US (occurrence: US)
  Receive Date: 20250424
  Receipt Date: 20250526
  Transmission Date: 20250717
  Serious: No
  Sender: AMGEN
  Company Number: US-PFIZER INC-202500085178

PATIENT
  Age: 71 Year
  Sex: Female
  Weight: 62.6 kg

DRUGS (1)
  1. ENBREL [Suspect]
     Active Substance: ETANERCEPT
     Indication: Product used for unknown indication
     Route: 065

REACTIONS (1)
  - Drug ineffective [Unknown]
